FAERS Safety Report 15697508 (Version 1)
Quarter: 2018Q4

REPORT INFORMATION
  Report Type: Report from Study
  Country: None (occurrence: US)
  Receive Date: 20181207
  Receipt Date: 20181207
  Transmission Date: 20190205
  Serious: Yes (Other)
  Sender: FDA-Public Use
  Company Number: US-ABBVIE-18S-163-2575457-00

PATIENT
  Age: 78 Year
  Sex: Male

DRUGS (1)
  1. ANDROGEL [Suspect]
     Active Substance: TESTOSTERONE
     Indication: PRODUCT USED FOR UNKNOWN INDICATION
     Route: 061

REACTIONS (16)
  - Atherectomy [Unknown]
  - Type 2 diabetes mellitus [Unknown]
  - Depression [Unknown]
  - Headache [Unknown]
  - Polypectomy [Unknown]
  - Polypectomy [Unknown]
  - Cholecystectomy [Unknown]
  - Testicular failure [Unknown]
  - Hypogonadism [Unknown]
  - Back disorder [Unknown]
  - Hypertensive nephropathy [Unknown]
  - Hypertension [Unknown]
  - Retinal detachment [Unknown]
  - Cataract operation [Unknown]
  - Chronic kidney disease [Unknown]
  - Hyperlipidaemia [Unknown]

NARRATIVE: CASE EVENT DATE: 1995
